FAERS Safety Report 7049071-7 (Version None)
Quarter: 2010Q4

REPORT INFORMATION
  Report Type: 
  Country: None (occurrence: None)
  Receive Date: 20101012
  Receipt Date: 20100930
  Transmission Date: 20110411
  Serious: Yes (Death)
  Sender: FDA-Public Use
  Company Number: 2010MA003256

PATIENT
  Sex: Female

DRUGS (5)
  1. TRAMADOL HYDROCHLORIDE [Suspect]
     Indication: ARTHRITIS
     Dosage: 100 MG;BID;PO
     Route: 048
  2. FELODIPINE [Concomitant]
  3. ROSUVASTATIN [Concomitant]
  4. PARACETAMOL [Concomitant]
  5. CHONDROITIN SULPHATE [Concomitant]

REACTIONS (2)
  - ARRHYTHMIA [None]
  - CARDIAC ARREST [None]
